FAERS Safety Report 24458561 (Version 1)
Quarter: 2024Q4

REPORT INFORMATION
  Report Type: Spontaneous
  Country: BR (occurrence: BR)
  Receive Date: 20241018
  Receipt Date: 20241018
  Transmission Date: 20250115
  Serious: No
  Sender: ROCHE
  Company Number: BR-ROCHE-3517036

PATIENT
  Age: 42 Year
  Sex: Female
  Weight: 66.0 kg

DRUGS (1)
  1. RITUXIMAB [Suspect]
     Active Substance: RITUXIMAB
     Indication: Rheumatoid arthritis
     Dosage: 1 AMPOULE BOTTLE?ON 21/FEB/2024, RECEIVED THE MOST RECENT INFUSION.
     Route: 041
     Dates: start: 20170302

REACTIONS (1)
  - Throat irritation [Recovered/Resolved]
